FAERS Safety Report 20164997 (Version 2)
Quarter: 2022Q3

REPORT INFORMATION
  Report Type: Report from Study
  Country: MX (occurrence: MX)
  Receive Date: 20211209
  Receipt Date: 20220716
  Transmission Date: 20221027
  Serious: Yes (Death, Other)
  Sender: FDA-Public Use
  Company Number: MX-NOVARTISPH-NVSC2021MX281371

PATIENT
  Sex: Male
  Weight: 75 kg

DRUGS (1)
  1. METFORMIN HYDROCHLORIDE\VILDAGLIPTIN [Suspect]
     Active Substance: METFORMIN HYDROCHLORIDE\VILDAGLIPTIN
     Indication: Diabetes mellitus
     Dosage: 1 DOSAGE FORM, BID, (50 MG OF VILDAGLIPTIN AND 500 MG OF METFORMIN HYDROCHLORIDE)
     Route: 048
     Dates: start: 2010

REACTIONS (3)
  - Myocardial infarction [Fatal]
  - Arrhythmia [Unknown]
  - Hypertension [Unknown]

NARRATIVE: CASE EVENT DATE: 20110101
